FAERS Safety Report 23042799 (Version 1)
Quarter: 2023Q4

REPORT INFORMATION
  Report Type: Spontaneous
  Country: US (occurrence: US)
  Receive Date: 20231009
  Receipt Date: 20231009
  Transmission Date: 20240110
  Serious: No
  Sender: FDA-Public Use
  Company Number: US-GILEAD-2023-0646248

PATIENT
  Sex: Female

DRUGS (2)
  1. CAYSTON [Suspect]
     Active Substance: AZTREONAM
     Indication: Pseudomonas infection
     Dosage: UNK
     Route: 065
     Dates: start: 202301
  2. CAYSTON [Suspect]
     Active Substance: AZTREONAM
     Dosage: UNK
     Route: 065
     Dates: start: 20221212

REACTIONS (3)
  - Cough [Not Recovered/Not Resolved]
  - Agitation [Not Recovered/Not Resolved]
  - Malaise [Not Recovered/Not Resolved]
